FAERS Safety Report 5102964-X (Version None)
Quarter: 2006Q3

REPORT INFORMATION
  Report Type: 
  Country: None (occurrence: None)
  Receive Date: 20060907
  Receipt Date: 20060822
  Transmission Date: 20061208
  Serious: Yes (Other)
  Sender: FDA-Public Use
  Company Number: JP200608004911

PATIENT
  Age: 11 Year
  Sex: Female
  Weight: 26.5 kg

DRUGS (4)
  1. SOMATROPIN (SOMATROPIN) [Suspect]
     Indication: GROWTH HORMONE DEFICIENCY
     Dosage: 0.8 MG, 6/Q, SUBCUTANEOUS; 1 MG, 6/W, SUBCUTANEOUS
     Route: 058
     Dates: start: 20050628, end: 20051116
  2. SOMATROPIN (SOMATROPIN) [Suspect]
     Indication: GROWTH HORMONE DEFICIENCY
     Dosage: 0.8 MG, 6/Q, SUBCUTANEOUS; 1 MG, 6/W, SUBCUTANEOUS
     Route: 058
     Dates: start: 20051117
  3. PHENYTOIN [Concomitant]
  4. RIVOTRIL [Concomitant]

REACTIONS (3)
  - CONTUSION [None]
  - NEUROFIBROMA [None]
  - SKIN LESION [None]
